FAERS Safety Report 18754456 (Version 3)
Quarter: 2021Q2

REPORT INFORMATION
  Report Type: Spontaneous
  Country: US (occurrence: US)
  Receive Date: 20210119
  Receipt Date: 20210407
  Transmission Date: 20210717
  Serious: Yes (Hospitalization, Other)
  Sender: FDA-Public Use
  Company Number: US-JNJFOC-20210114790

PATIENT
  Age: 52 Year
  Sex: Male
  Weight: 32.69 kg

DRUGS (9)
  1. ENBREL [Suspect]
     Active Substance: ETANERCEPT
     Indication: PRODUCT USED FOR UNKNOWN INDICATION
  2. LANTUS [Concomitant]
     Active Substance: INSULIN GLARGINE
     Indication: PRODUCT USED FOR UNKNOWN INDICATION
     Route: 065
  3. ORENCIA [Suspect]
     Active Substance: ABATACEPT
     Indication: PRODUCT USED FOR UNKNOWN INDICATION
  4. OXYCODONE [Concomitant]
     Active Substance: OXYCODONE
     Indication: PRODUCT USED FOR UNKNOWN INDICATION
     Route: 065
  5. PREDNISONE. [Suspect]
     Active Substance: PREDNISONE
     Indication: PRODUCT USED FOR UNKNOWN INDICATION
     Route: 065
  6. MORPHINE [Concomitant]
     Active Substance: MORPHINE
  7. HUMIRA [Suspect]
     Active Substance: ADALIMUMAB
     Indication: PRODUCT USED FOR UNKNOWN INDICATION
  8. SIMPONI [Suspect]
     Active Substance: GOLIMUMAB
     Indication: RHEUMATOID ARTHRITIS
     Route: 058
     Dates: start: 20201210
  9. XANAX [Concomitant]
     Active Substance: ALPRAZOLAM

REACTIONS (25)
  - Joint injury [Recovered/Resolved]
  - Memory impairment [Not Recovered/Not Resolved]
  - Nightmare [Recovered/Resolved]
  - Diarrhoea [Unknown]
  - Stress [Not Recovered/Not Resolved]
  - Blister [Not Recovered/Not Resolved]
  - Purulence [Not Recovered/Not Resolved]
  - Diabetic coma [Unknown]
  - Rheumatoid arthritis [Unknown]
  - Dry skin [Not Recovered/Not Resolved]
  - Thinking abnormal [Unknown]
  - Myocardial infarction [Unknown]
  - Systemic lupus erythematosus [Unknown]
  - Emotional distress [Not Recovered/Not Resolved]
  - Joint noise [Recovered/Resolved]
  - Groin pain [Unknown]
  - Drug ineffective [Recovering/Resolving]
  - Chills [Not Recovered/Not Resolved]
  - Eating disorder [Unknown]
  - Joint lock [Recovered/Resolved]
  - Pain [Recovered/Resolved]
  - Pneumonia [Recovered/Resolved]
  - Skin lesion [Recovered/Resolved]
  - Illness [Recovered/Resolved]
  - Skin exfoliation [Not Recovered/Not Resolved]

NARRATIVE: CASE EVENT DATE: 20210106
